FAERS Safety Report 24541971 (Version 1)
Quarter: 2024Q4

REPORT INFORMATION
  Report Type: Spontaneous
  Country: US (occurrence: US)
  Receive Date: 20241023
  Receipt Date: 20241023
  Transmission Date: 20250115
  Serious: No
  Sender: TEVA
  Company Number: US-TEVA-VS-3250935

PATIENT
  Age: 38 Year
  Sex: Male

DRUGS (2)
  1. QVAR REDIHALER [Suspect]
     Active Substance: BECLOMETHASONE DIPROPIONATE
     Indication: Asthma
     Dosage: 80 MCG/DOSE?1 PUFF BY MOUTH TWICE DAILY
     Route: 055
  2. LORATADINE [Concomitant]
     Active Substance: LORATADINE

REACTIONS (7)
  - Productive cough [Unknown]
  - Device issue [Unknown]
  - Respiration abnormal [Unknown]
  - Adverse event [Unknown]
  - Off label use [Unknown]
  - Product taste abnormal [Unknown]
  - Cough [Unknown]
